FAERS Safety Report 9511081 (Version 1)
Quarter: 2013Q3

REPORT INFORMATION
  Report Type: Spontaneous
  Country: US (occurrence: None)
  Receive Date: 20130909
  Receipt Date: 20130909
  Transmission Date: 20140515
  Serious: Yes (Hospitalization)
  Sender: FDA-Public Use
  Company Number: None

PATIENT
  Age: 35 Year
  Sex: Male
  Weight: 100.5 kg

DRUGS (2)
  1. ORLISTAT [Suspect]
     Indication: WEIGHT DECREASED
     Dosage: ORLISTAT 60 MG BID-TID ORAL?JAN. 2013-LATE APRIL 2013
     Route: 048
     Dates: start: 201301, end: 201304
  2. OXYELITE PRO [Suspect]
     Dosage: 1 TAB 5X/WEEK ORAL?JAN. 2013-LATE APRIL 2013
     Route: 048
     Dates: start: 201301, end: 201304

REACTIONS (11)
  - Dyspepsia [None]
  - Chromaturia [None]
  - Dehydration [None]
  - Decreased appetite [None]
  - Faeces discoloured [None]
  - Jaundice [None]
  - Ocular icterus [None]
  - Rash papular [None]
  - Faeces pale [None]
  - Blood bilirubin increased [None]
  - Transaminases increased [None]
